FAERS Safety Report 15265904 (Version 1)
Quarter: 2018Q4

REPORT INFORMATION
  Report Type: Spontaneous
  Country: FR (occurrence: FR)
  Receive Date: 20180810
  Receipt Date: 20180810
  Transmission Date: 20190204
  Serious: Yes (Death)
  Sender: FDA-Public Use
  Company Number: FR-PFIZER INC-2018316730

PATIENT
  Age: 83 Year
  Sex: Female
  Weight: 89 kg

DRUGS (6)
  1. PHYTOMENADIONE [Suspect]
     Active Substance: PHYTONADIONE
     Dosage: 1 DF, 1X/DAY
     Route: 042
     Dates: start: 20180624, end: 20180629
  2. PHLOROGLUCINOL/TRIMETHYLPHLOROGLUCINOL ARROW [Suspect]
     Active Substance: PHLOROGLUCINOL\1,3,5-TRIMETHOXYBENZENE
     Indication: PAIN
     Dosage: 2 DF, 1X/DAY
     Route: 042
     Dates: start: 20180624, end: 20180627
  3. LORAZEPAM. [Suspect]
     Active Substance: LORAZEPAM
     Indication: ANXIETY
     Dosage: 5 MG, 1X/DAY
     Route: 048
     Dates: end: 20180627
  4. TRIMEBUTINE MALEATE [Suspect]
     Active Substance: TRIMEBUTINE MALEATE
     Indication: PAIN
     Dosage: 200 MG, 1X/DAY
     Route: 042
     Dates: start: 20180624, end: 20180630
  5. ATORVASTATINE PFIZER [Suspect]
     Active Substance: ATORVASTATIN
     Dosage: 10 MG, 1X/DAY
     Route: 048
     Dates: end: 20180627
  6. NEFOPAM HYDROCHLORIDE [Suspect]
     Active Substance: NEFOPAM HYDROCHLORIDE
     Indication: PAIN
     Dosage: 5 DF, 1X/DAY
     Route: 042
     Dates: start: 20180624, end: 20180628

REACTIONS (3)
  - Pancreatic neoplasm [Fatal]
  - Anaemia [Fatal]
  - Acute kidney injury [Fatal]

NARRATIVE: CASE EVENT DATE: 20180625
